FAERS Safety Report 14638522 (Version 1)
Quarter: 2018Q1

REPORT INFORMATION
  Report Type: Report from Study
  Country: None (occurrence: US)
  Receive Date: 20180314
  Receipt Date: 20180314
  Transmission Date: 20180509
  Serious: Yes (Other)
  Sender: FDA-Public Use
  Company Number: US-ABBVIE-18K-163-2286539-00

PATIENT
  Age: 72 Year
  Sex: Male
  Weight: 54.93 kg

DRUGS (1)
  1. HUMIRA [Suspect]
     Active Substance: ADALIMUMAB
     Indication: CROHN^S DISEASE
     Route: 058

REACTIONS (2)
  - Limb traumatic amputation [Not Recovered/Not Resolved]
  - Stress fracture [Unknown]

NARRATIVE: CASE EVENT DATE: 20180227
